FAERS Safety Report 7443132-6 (Version None)
Quarter: 2011Q2

REPORT INFORMATION
  Report Type: 
  Country: None (occurrence: None)
  Receive Date: 20110428
  Receipt Date: 20110422
  Transmission Date: 20111010
  Serious: Yes (Hospitalization)
  Sender: FDA-Public Use
  Company Number: A0849351A

PATIENT
  Age: 59 Year
  Sex: Male
  Weight: 100 kg

DRUGS (9)
  1. JANUVIA [Concomitant]
  2. ALLOPURINOL [Concomitant]
  3. TRICOR [Concomitant]
  4. SPIRIVA [Concomitant]
  5. NORVASC [Concomitant]
  6. ZOCOR [Concomitant]
  7. AVANDIA [Suspect]
     Indication: DIABETES MELLITUS
     Dosage: 4MG PER DAY
     Route: 048
     Dates: end: 20090101
  8. LANTUS [Concomitant]
  9. LOPRESSOR [Concomitant]

REACTIONS (5)
  - IMPLANTABLE DEFIBRILLATOR INSERTION [None]
  - LUNG DISORDER [None]
  - LIMB INJURY [None]
  - CARDIAC FAILURE CONGESTIVE [None]
  - RENAL FAILURE [None]
